FAERS Safety Report 10550676 (Version 5)
Quarter: 2015Q1

REPORT INFORMATION
  Report Type: Spontaneous
  Country: US (occurrence: US)
  Receive Date: 20141029
  Receipt Date: 20150105
  Transmission Date: 20150720
  Serious: Yes (Hospitalization)
  Sender: FDA-Public Use
  Company Number: US-UNITED THERAPEUTICS-UNT-2014-009735

PATIENT
  Age: 61 Year
  Sex: Female
  Weight: 77.98 kg

DRUGS (5)
  1. ADEMPAS [Concomitant]
     Active Substance: RIOCIGUAT
     Indication: PRODUCT USED FOR UNKNOWN INDICATION
  2. REMODULIN [Suspect]
     Active Substance: TREPROSTINIL
     Indication: PULMONARY HYPERTENSION
     Dosage: 0.069 ?G/KG, CONTINUING
     Route: 041
     Dates: start: 20100208
  3. REMODULIN [Suspect]
     Active Substance: TREPROSTINIL
     Indication: PULMONARY ARTERIAL HYPERTENSION
     Dosage: 0.069 ?G/KG, CONTINUING
     Route: 041
     Dates: start: 20100208
  4. REMODULIN [Suspect]
     Active Substance: TREPROSTINIL
     Dosage: 0.069 ?G/KG, CONTINUING
     Route: 041
     Dates: start: 20100208
  5. REMODULIN [Suspect]
     Active Substance: TREPROSTINIL
     Dosage: 0.069 ?G/KG, CONTINUING
     Route: 041
     Dates: start: 20100228

REACTIONS (4)
  - Drug dose omission [Unknown]
  - Haemorrhage [Unknown]
  - Device leakage [Unknown]
  - Vomiting [Unknown]

NARRATIVE: CASE EVENT DATE: 20141020
